FAERS Safety Report 17336836 (Version 1)
Quarter: 2020Q1

REPORT INFORMATION
  Report Type: Spontaneous
  Country: CA (occurrence: CA)
  Receive Date: 20200128
  Receipt Date: 20200128
  Transmission Date: 20200409
  Serious: Yes (Other)
  Sender: FDA-Public Use
  Company Number: CA-CASPER PHARMA LLC-2020CAS000063

PATIENT
  Sex: Male
  Weight: 1.71 kg

DRUGS (2)
  1. PENICILLIN G BENZATHINE [Suspect]
     Active Substance: PENICILLIN G BENZATHINE
     Dosage: 50,000 UNITS/KG/DOSE EVERY 8H FOR 7 DAYS
     Route: 042
  2. PENICILLIN G BENZATHINE [Suspect]
     Active Substance: PENICILLIN G BENZATHINE
     Indication: CONGENITAL SYPHILIS
     Dosage: 50,000 UNITS/KG/DOSE EVERY 12H FOR 7 DAYS
     Route: 042

REACTIONS (2)
  - Liver disorder [Unknown]
  - Jarisch-Herxheimer reaction [Unknown]
